FAERS Safety Report 9981194 (Version 1)
Quarter: 2014Q1

REPORT INFORMATION
  Report Type: Spontaneous
  Country: US (occurrence: None)
  Receive Date: 20140306
  Receipt Date: 20140306
  Transmission Date: 20141002
  Serious: No
  Sender: FDA-Public Use
  Company Number: None

PATIENT
  Sex: Male
  Weight: 83.92 kg

DRUGS (2)
  1. AMOXICILLIN [Suspect]
     Indication: TOOTH INFECTION
     Dosage: 500 MG 30 PILLS 3 TIMES DAILY BY MOUTH
     Route: 048
     Dates: start: 20140202, end: 20140222
  2. IRAMA [Concomitant]

REACTIONS (3)
  - Diarrhoea [None]
  - Medication residue present [None]
  - Product quality issue [None]
